APPROVED DRUG PRODUCT: DIURIL
Active Ingredient: CHLOROTHIAZIDE
Strength: 500MG **Federal Register determination that product was not discontinued or withdrawn for safety or effectiveness reasons**
Dosage Form/Route: TABLET;ORAL
Application: N011145 | Product #002
Applicant: RISING PHARMA HOLDINGS INC
Approved: Approved Prior to Jan 1, 1982 | RLD: Yes | RS: No | Type: DISCN